FAERS Safety Report 23277972 (Version 1)
Quarter: 2023Q4

REPORT INFORMATION
  Report Type: Spontaneous
  Country: NL (occurrence: NL)
  Receive Date: 20231208
  Receipt Date: 20231208
  Transmission Date: 20240110
  Serious: Yes (Death, Life-Threatening)
  Sender: FDA-Public Use
  Company Number: None

PATIENT
  Age: 33 Year
  Sex: Female
  Weight: 53 kg

DRUGS (2)
  1. FINGOLIMOD [Suspect]
     Active Substance: FINGOLIMOD
     Indication: Multiple sclerosis
     Dosage: 1 DOSAGE FORM, QW (1DD1 STUK GEDURENDE 1 JAAR,)
     Route: 065
     Dates: start: 20181206
  2. FINGOLIMOD [Suspect]
     Active Substance: FINGOLIMOD
     Dosage: 1 DOSAGE FORM (2 DAYS) (NADIEN 3X/WEEK 1 STUK  )
     Route: 065
     Dates: end: 20210325

REACTIONS (1)
  - T-cell type acute leukaemia [Fatal]

NARRATIVE: CASE EVENT DATE: 20230301
